FAERS Safety Report 9331177 (Version 1)
Quarter: 2013Q2

REPORT INFORMATION
  Report Type: Spontaneous
  Country: DE (occurrence: DE)
  Receive Date: 20130605
  Receipt Date: 20130605
  Transmission Date: 20140414
  Serious: Yes (Other)
  Sender: FDA-Public Use
  Company Number: GXKR2013DE001984

PATIENT
  Sex: Female

DRUGS (1)
  1. ZOLPIDEM 1A PHARMA [Suspect]
     Dosage: 40-60 MG/DAY
     Route: 048

REACTIONS (1)
  - Incorrect dose administered [Unknown]
